FAERS Safety Report 7356664-6 (Version None)
Quarter: 2011Q1

REPORT INFORMATION
  Report Type: 
  Country: None (occurrence: None)
  Receive Date: 20110316
  Receipt Date: 20110310
  Transmission Date: 20110831
  Serious: Yes (Death, Other)
  Sender: FDA-Public Use
  Company Number: PHHY2011EC20449

PATIENT
  Age: 64 Year
  Sex: Male

DRUGS (1)
  1. EXELON [Suspect]
     Indication: DEMENTIA ALZHEIMER'S TYPE
     Dosage: 4.6 MG, QD
     Route: 062
     Dates: start: 20100201, end: 20101201

REACTIONS (5)
  - DISEASE PROGRESSION [None]
  - DEMENTIA ALZHEIMER'S TYPE [None]
  - BLOOD URINE PRESENT [None]
  - DYSPHAGIA [None]
  - HYPOPHAGIA [None]
